FAERS Safety Report 11768831 (Version 1)
Quarter: 2015Q4

REPORT INFORMATION
  Report Type: Spontaneous
  Country: US (occurrence: None)
  Receive Date: 20151123
  Receipt Date: 20151123
  Transmission Date: 20160304
  Serious: Yes (Hospitalization, Other)
  Sender: FDA-Public Use
  Company Number: US-MDT-ADR-2015-02209

PATIENT
  Age: 56 Year
  Sex: Female

DRUGS (2)
  1. BACLOFEN INTRATHECAL 200 MCG/ML [Suspect]
     Active Substance: BACLOFEN
     Indication: PAIN
     Dosage: 96.69 MCG/DAY
  2. MORPHINE INTRATHECAL 30 MG/ML [Suspect]
     Active Substance: MORPHINE
     Indication: PAIN
     Dosage: 14.504 MG/DAY

REACTIONS (2)
  - Endocarditis [None]
  - Bacteraemia [None]
